FAERS Safety Report 4440883-2 (Version None)
Quarter: 2004Q3

REPORT INFORMATION
  Report Type: 
  Country: None (occurrence: None)
  Receive Date: 20040728
  Receipt Date: 20040226
  Transmission Date: 20050211
  Serious: No
  Sender: FDA-Public Use
  Company Number: USA040155774

PATIENT
  Age: 11 Year
  Sex: Female
  Weight: 58 kg

DRUGS (1)
  1. STRATTERA [Suspect]
     Indication: ATTENTION DEFICIT/HYPERACTIVITY DISORDER
     Dosage: 40 MG/DAY
     Route: 048
     Dates: start: 20040102, end: 20040104

REACTIONS (3)
  - CHEST PAIN [None]
  - HEADACHE [None]
  - PHARYNGOLARYNGEAL PAIN [None]
